FAERS Safety Report 23318768 (Version 1)
Quarter: 2023Q4

REPORT INFORMATION
  Report Type: Spontaneous
  Country: US (occurrence: US)
  Receive Date: 20231220
  Receipt Date: 20231220
  Transmission Date: 20240110
  Serious: No
  Sender: FDA-Public Use
  Company Number: ENDG23-04271

PATIENT
  Sex: Female

DRUGS (2)
  1. MINOXIDIL [Suspect]
     Active Substance: MINOXIDIL
     Indication: Alopecia
     Dosage: UNK UNKNOWN, UNKNOWN (HALF A TABLET)
     Route: 065
     Dates: start: 202304, end: 2023
  2. MINOXIDIL [Suspect]
     Active Substance: MINOXIDIL
     Dosage: UNK UNKNOWN, UNKNOWN (TAKING ONE ENTIRE TABLET)
     Route: 065
     Dates: start: 2023, end: 202306

REACTIONS (2)
  - Hair growth abnormal [Not Recovered/Not Resolved]
  - Off label use [Recovered/Resolved]

NARRATIVE: CASE EVENT DATE: 20230101
